FAERS Safety Report 9752050 (Version 1)
Quarter: 2013Q4

REPORT INFORMATION
  Report Type: Spontaneous
  Country: SE (occurrence: None)
  Receive Date: 20131211
  Receipt Date: 20131211
  Transmission Date: 20140711
  Serious: Yes (Hospitalization, Other)
  Sender: FDA-Public Use
  Company Number: AUR-APL-2013-10266

PATIENT
  Age: 43 Year
  Sex: Female
  Weight: 62 kg

DRUGS (5)
  1. METOPROLOL [Suspect]
     Indication: MYOCARDIAL INFARCTION
     Dosage: 100 MG (50 MG, 2 IN 1 D), UNKNOWN
     Dates: start: 201304
  2. RAMIPRIL [Suspect]
     Indication: PRODUCT USED FOR UNKNOWN INDICATION
     Dosage: 20 MG (10MG, 2 IN 1 D), ORAL
     Route: 048
     Dates: start: 201304
  3. BRILINTA [Suspect]
     Indication: MYOCARDIAL INFARCTION
     Route: 048
     Dates: start: 201304
  4. ATORVASTATIN (ATORVASATIN) [Concomitant]
  5. THROMBIN (THROMBIN) [Concomitant]

REACTIONS (7)
  - Nausea [None]
  - Blood pressure abnormal [None]
  - Dizziness [None]
  - Loss of consciousness [None]
  - Tremor [None]
  - Musculoskeletal pain [None]
  - Back pain [None]
